FAERS Safety Report 22936337 (Version 2)
Quarter: 2023Q4

REPORT INFORMATION
  Report Type: Spontaneous
  Country: JP (occurrence: JP)
  Receive Date: 20230912
  Receipt Date: 20231001
  Transmission Date: 20240109
  Serious: Yes (Death, Other)
  Sender: FDA-Public Use
  Company Number: JP-MSD-M2023-37735

PATIENT
  Age: 66 Year
  Sex: Male
  Weight: 87 kg

DRUGS (2)
  1. LAGEVRIO [Suspect]
     Active Substance: MOLNUPIRAVIR
     Indication: COVID-19 treatment
     Dosage: 800 MILLIGRAM, BID
     Route: 048
     Dates: start: 20230825, end: 20230829
  2. CALONAL [Concomitant]
     Active Substance: ACETAMINOPHEN
     Indication: Pyrexia
     Dosage: 500 MILLIGRAM, BID
     Route: 048
     Dates: start: 20230825, end: 20230829

REACTIONS (3)
  - Pneumonia [Fatal]
  - Condition aggravated [Unknown]
  - Drug ineffective [Fatal]

NARRATIVE: CASE EVENT DATE: 20230801
